FAERS Safety Report 19691890 (Version 1)
Quarter: 2021Q3

REPORT INFORMATION
  Report Type: Spontaneous
  Country: US (occurrence: US)
  Receive Date: 20210812
  Receipt Date: 20210812
  Transmission Date: 20211014
  Serious: Yes (Death)
  Sender: FDA-Public Use
  Company Number: US-PFIZER INC-202100967459

PATIENT
  Age: 19 Year
  Sex: Female

DRUGS (3)
  1. VINCRISTINE SULFATE. [Suspect]
     Active Substance: VINCRISTINE SULFATE
     Indication: GLIOMA
     Dosage: UNK, CYCLIC (5 CYCLES)
  2. TEMOZOLOMIDE. [Suspect]
     Active Substance: TEMOZOLOMIDE
     Indication: GLIOMA
     Dosage: UNK, CYCLIC (FIVE CYCLES)
  3. CARBOPLATIN. [Suspect]
     Active Substance: CARBOPLATIN
     Indication: GLIOMA
     Dosage: UNK, CYCLIC (FIVE CYCLES)

REACTIONS (1)
  - Neoplasm progression [Fatal]
